FAERS Safety Report 21830760 (Version 1)
Quarter: 2023Q1

REPORT INFORMATION
  Report Type: Spontaneous
  Country: FR (occurrence: FR)
  Receive Date: 20230106
  Receipt Date: 20230106
  Transmission Date: 20230417
  Serious: Yes (Hospitalization)
  Sender: FDA-Public Use
  Company Number: None

PATIENT
  Age: 85 Year
  Sex: Female
  Weight: 65 kg

DRUGS (3)
  1. FUROSEMIDE [Interacting]
     Active Substance: FUROSEMIDE
     Indication: Stress cardiomyopathy
     Dosage: 80 MILLIGRAM, QD
     Route: 048
     Dates: start: 20221014, end: 20221015
  2. RAMIPRIL [Interacting]
     Active Substance: RAMIPRIL
     Indication: Stress cardiomyopathy
     Dosage: 1.25 MILLIGRAM, QD
     Route: 048
     Dates: start: 20221013, end: 20221015
  3. BISOPROLOL [Interacting]
     Active Substance: BISOPROLOL
     Indication: Stress cardiomyopathy
     Dosage: 2.5 MILLIGRAM, QD
     Route: 048
     Dates: start: 20221013, end: 20221015

REACTIONS (2)
  - Hypotension [Recovered/Resolved]
  - Drug interaction [Recovered/Resolved]

NARRATIVE: CASE EVENT DATE: 20221015
